FAERS Safety Report 13779192 (Version 2)
Quarter: 2018Q3

REPORT INFORMATION
  Report Type: Spontaneous
  Country: US (occurrence: US)
  Receive Date: 20170721
  Receipt Date: 20180727
  Transmission Date: 20181010
  Serious: Yes (Hospitalization)
  Sender: FDA-Public Use
  Company Number: US-APOTEX-2017AP015603

PATIENT
  Age: 40 Year
  Sex: Female

DRUGS (24)
  1. ALPRAZOLAM. [Concomitant]
     Active Substance: ALPRAZOLAM
     Route: 065
  2. SPIRONOLACTONE. [Concomitant]
     Active Substance: SPIRONOLACTONE
     Route: 065
  3. FLOLAN [Suspect]
     Active Substance: EPOPROSTENOL SODIUM
     Dosage: 60 DF, CO
     Route: 065
     Dates: start: 20110630
  4. FLOLAN [Suspect]
     Active Substance: EPOPROSTENOL SODIUM
     Dosage: UNK
  5. COUMADIN [Suspect]
     Active Substance: WARFARIN SODIUM
     Indication: PRODUCT USED FOR UNKNOWN INDICATION
     Dosage: UNK
     Route: 065
     Dates: start: 200508, end: 201404
  6. METOCLOPRAMIDE. [Concomitant]
     Active Substance: METOCLOPRAMIDE
     Route: 065
  7. TORSEMIDE. [Concomitant]
     Active Substance: TORSEMIDE
     Route: 065
  8. VENLAFAXINE XL [Concomitant]
     Indication: PRODUCT USED FOR UNKNOWN INDICATION
     Route: 065
  9. FLOLAN DILUENT PH 12 SOLUTION FOR INJECTION [Suspect]
     Active Substance: GLYCINE\MANNITOL\SODIUM CHLORIDE
     Indication: PULMONARY ARTERIAL HYPERTENSION
     Dosage: UNK
     Route: 065
     Dates: start: 20170502
  10. AMBRISENTAN [Suspect]
     Active Substance: AMBRISENTAN
     Indication: PRODUCT USED FOR UNKNOWN INDICATION
     Dosage: 10 MG, QD
     Route: 048
     Dates: start: 2011
  11. POTASSIUM CHLORIDE. [Concomitant]
     Active Substance: POTASSIUM CHLORIDE
     Route: 065
  12. PAXIL [Suspect]
     Active Substance: PAROXETINE HYDROCHLORIDE
     Indication: PRODUCT USED FOR UNKNOWN INDICATION
     Route: 048
  13. ADCIRCA [Suspect]
     Active Substance: TADALAFIL
     Indication: PRODUCT USED FOR UNKNOWN INDICATION
     Dosage: 40 MG, QD
     Route: 048
     Dates: start: 2011
  14. RANITIDINE HYDROCHLORIDE TABLET [Concomitant]
     Active Substance: RANITIDINE HYDROCHLORIDE
     Indication: PRODUCT USED FOR UNKNOWN INDICATION
     Route: 065
  15. METOLAZONE. [Concomitant]
     Active Substance: METOLAZONE
     Route: 065
  16. OMEPRAZOLE. [Concomitant]
     Active Substance: OMEPRAZOLE
     Route: 065
  17. FLOLAN [Suspect]
     Active Substance: EPOPROSTENOL SODIUM
     Indication: PULMONARY ARTERIAL HYPERTENSION
     Dosage: 60 DF, CO
     Route: 065
     Dates: start: 200902
  18. FLOLAN DILUENT PH 12 SOLUTION FOR INJECTION [Suspect]
     Active Substance: GLYCINE\MANNITOL\SODIUM CHLORIDE
     Dosage: UNK
  19. FUROSEMIDE. [Concomitant]
     Active Substance: FUROSEMIDE
     Route: 065
  20. FLUTICASONE NASAL SPRAY [Concomitant]
     Active Substance: FLUTICASONE
     Indication: PRODUCT USED FOR UNKNOWN INDICATION
     Route: 065
  21. ONDANSETRON [Concomitant]
     Active Substance: ONDANSETRON
     Route: 065
  22. VIIBRYD [Concomitant]
     Active Substance: VILAZODONE HYDROCHLORIDE
     Indication: PRODUCT USED FOR UNKNOWN INDICATION
     Route: 065
  23. OXYCODONE?ACETAMINOPHEN [Concomitant]
     Active Substance: ACETAMINOPHEN\OXYCODONE HYDROCHLORIDE
     Indication: PRODUCT USED FOR UNKNOWN INDICATION
     Route: 065
  24. TEMAZEPAM. [Concomitant]
     Active Substance: TEMAZEPAM
     Indication: PRODUCT USED FOR UNKNOWN INDICATION
     Route: 065

REACTIONS (39)
  - Nausea [Not Recovered/Not Resolved]
  - Rhinorrhoea [Unknown]
  - Pyrexia [Unknown]
  - Nasal discharge discolouration [Unknown]
  - Drooling [Unknown]
  - Abdominal pain [Unknown]
  - Dehydration [Not Recovered/Not Resolved]
  - Vomiting [Not Recovered/Not Resolved]
  - Ear discomfort [Unknown]
  - Back pain [Unknown]
  - Nodule [Unknown]
  - Complication associated with device [Unknown]
  - Nasopharyngitis [Unknown]
  - Lymphadenopathy [Unknown]
  - Influenza [Unknown]
  - Wheezing [Unknown]
  - Pelvic haematoma [Unknown]
  - Haematoma evacuation [Unknown]
  - Headache [Unknown]
  - Chest pain [Unknown]
  - Chest discomfort [Unknown]
  - Appetite disorder [Unknown]
  - Upper respiratory tract congestion [Unknown]
  - Dyspnoea [Unknown]
  - Nasal turbinate abnormality [Unknown]
  - Ill-defined disorder [Unknown]
  - Upper-airway cough syndrome [Unknown]
  - Dysphagia [Unknown]
  - Swelling face [Unknown]
  - Productive cough [Unknown]
  - Dysphonia [Unknown]
  - Skin discolouration [Unknown]
  - Oropharyngeal pain [Unknown]
  - Respiratory disorder [Unknown]
  - Chills [Unknown]
  - Drug hypersensitivity [Unknown]
  - Sputum discoloured [Unknown]
  - Paranasal sinus discomfort [Unknown]
  - Asthenia [Unknown]

NARRATIVE: CASE EVENT DATE: 2014
